FAERS Safety Report 11178569 (Version 3)
Quarter: 2015Q2

REPORT INFORMATION
  Report Type: Report from Study
  Country: ES (occurrence: ES)
  Receive Date: 20150610
  Receipt Date: 20150616
  Transmission Date: 20150821
  Serious: Yes (Hospitalization, Other)
  Sender: FDA-Public Use
  Company Number: ES-JNJFOC-20150604243

PATIENT
  Age: 39 Year
  Sex: Male
  Weight: 59.7 kg

DRUGS (5)
  1. IRON [Concomitant]
     Active Substance: IRON
     Indication: IRON DEFICIENCY
     Dosage: 1-0-1
     Route: 048
  2. PSYLLIUM [Concomitant]
     Active Substance: PLANTAGO SEED
     Dosage: 1-0-1
     Route: 065
  3. REMICADE [Suspect]
     Active Substance: INFLIXIMAB
     Indication: COLITIS ULCERATIVE
     Route: 042
     Dates: start: 20100215, end: 20100615
  4. REMICADE [Suspect]
     Active Substance: INFLIXIMAB
     Indication: COLITIS ULCERATIVE
     Route: 042
     Dates: start: 20101103, end: 20120613
  5. FORTASEC [Concomitant]
     Active Substance: LOPERAMIDE HYDROCHLORIDE
     Indication: CHANGE OF BOWEL HABIT
     Dosage: 1-0-1
     Route: 048
     Dates: start: 20140507

REACTIONS (4)
  - Aspergillus infection [Unknown]
  - Lung infection [Recovered/Resolved]
  - Tuberculosis [Unknown]
  - Pneumonia [Recovered/Resolved]

NARRATIVE: CASE EVENT DATE: 20100620
